FAERS Safety Report 21269507 (Version 1)
Quarter: 2022Q3

REPORT INFORMATION
  Report Type: Spontaneous
  Country: CA (occurrence: CA)
  Receive Date: 20220830
  Receipt Date: 20220830
  Transmission Date: 20221027
  Serious: Yes (Other)
  Sender: FDA-Public Use
  Company Number: None

PATIENT
  Age: 69 Year

DRUGS (2)
  1. TACROLIMUS [Suspect]
     Active Substance: TACROLIMUS
     Indication: Pruritus
     Dosage: 1 EVERY 1 DAYS
  2. AZELAIC ACID [Suspect]
     Active Substance: AZELAIC ACID
     Indication: Pruritus
     Dosage: 2 EVERY 1 DAYS

REACTIONS (9)
  - Eye swelling [Unknown]
  - Hot flush [Unknown]
  - Insomnia [Unknown]
  - Ocular hyperaemia [Unknown]
  - Pruritus [Unknown]
  - Skin burning sensation [Unknown]
  - Skin irritation [Unknown]
  - Skin mass [Unknown]
  - Swelling face [Unknown]
